FAERS Safety Report 26105817 (Version 1)
Quarter: 2025Q4

REPORT INFORMATION
  Report Type: Spontaneous
  Country: JP (occurrence: JP)
  Receive Date: 20251201
  Receipt Date: 20251201
  Transmission Date: 20260117
  Serious: Yes (Other)
  Sender: PHARMOBEDIENT CONSULTING, LLC
  Company Number: JP-Pharmobedient-000552

PATIENT
  Age: 45 Year
  Sex: Female
  Weight: 0 kg

DRUGS (4)
  1. GEMCITABINE [Suspect]
     Active Substance: GEMCITABINE
     Indication: Uterine leiomyosarcoma
     Dosage: SIX CYCLES
     Dates: start: 201106, end: 201109
  2. DOCETAXEL [Suspect]
     Active Substance: DOCETAXEL
     Indication: Uterine leiomyosarcoma
     Dosage: SIX CYCLE
     Dates: start: 201106, end: 201109
  3. GEMCITABINE [Suspect]
     Active Substance: GEMCITABINE
     Indication: Uterine leiomyosarcoma
     Dosage: EIGHT COURSE
     Dates: start: 201112, end: 201205
  4. DOCETAXEL [Suspect]
     Active Substance: DOCETAXEL
     Indication: Uterine leiomyosarcoma
     Dosage: EIGHT COURSE
     Dates: start: 201112, end: 201205

REACTIONS (2)
  - Pneumothorax [Unknown]
  - Oedema [Unknown]

NARRATIVE: CASE EVENT DATE: 20111004
